FAERS Safety Report 18130660 (Version 1)
Quarter: 2020Q3

REPORT INFORMATION
  Report Type: Report from Study
  Country: US (occurrence: US)
  Receive Date: 20200810
  Receipt Date: 20200810
  Transmission Date: 20201103
  Serious: Yes (Hospitalization)
  Sender: FDA-Public Use
  Company Number: US-BAYER-2020-097838

PATIENT
  Age: 78 Year
  Sex: Male

DRUGS (1)
  1. NUBEQA [Suspect]
     Active Substance: DAROLUTAMIDE
     Indication: HORMONE-REFRACTORY PROSTATE CANCER
     Dosage: 600 MG, BID
     Route: 048
     Dates: start: 20200108

REACTIONS (6)
  - Hyperhidrosis [Not Recovered/Not Resolved]
  - Head discomfort [Not Recovered/Not Resolved]
  - Hot flush [Not Recovered/Not Resolved]
  - Pain in extremity [Not Recovered/Not Resolved]
  - Muscle spasms [Not Recovered/Not Resolved]
  - Hospitalisation [None]
